FAERS Safety Report 15239926 (Version 1)
Quarter: 2018Q3

REPORT INFORMATION
  Report Type: Report from Study
  Country: US (occurrence: US)
  Receive Date: 20180803
  Receipt Date: 20180803
  Transmission Date: 20181010
  Serious: Yes (Death)
  Sender: FDA-Public Use
  Company Number: US-UNITED THERAPEUTICS-UNT-2018-012005

PATIENT
  Sex: Male
  Weight: 140.14 kg

DRUGS (4)
  1. UT?15C SR [Suspect]
     Active Substance: TREPROSTINIL DIOLAMINE
     Indication: PULMONARY ARTERIAL HYPERTENSION
     Dosage: 0.125 MG, TID
     Route: 048
     Dates: start: 20180620
  2. UT?15C SR [Suspect]
     Active Substance: TREPROSTINIL DIOLAMINE
     Dosage: UNK
     Route: 048
  3. WARFARIN [Concomitant]
     Active Substance: WARFARIN
     Indication: PRODUCT USED FOR UNKNOWN INDICATION
     Route: 065
  4. UT?15C SR [Suspect]
     Active Substance: TREPROSTINIL DIOLAMINE
     Dosage: UNK
     Route: 048

REACTIONS (2)
  - Death [Fatal]
  - Oxygen saturation decreased [Unknown]

NARRATIVE: CASE EVENT DATE: 2018
